FAERS Safety Report 18293217 (Version 1)
Quarter: 2020Q3

REPORT INFORMATION
  Report Type: Spontaneous
  Country: US (occurrence: US)
  Receive Date: 20200921
  Receipt Date: 20200921
  Transmission Date: 20201103
  Serious: Yes (Hospitalization)
  Sender: FDA-Public Use
  Company Number: None

PATIENT
  Age: 37 Year
  Sex: Female

DRUGS (2)
  1. HUMIRA [Suspect]
     Active Substance: ADALIMUMAB
     Indication: PSORIATIC ARTHROPATHY
     Dosage: ?          OTHER FREQUENCY:EVERY 2 WEEKS;?
     Route: 058
     Dates: start: 20190522
  2. ORPHENADRINE [Concomitant]
     Active Substance: ORPHENADRINE

REACTIONS (6)
  - Chest discomfort [None]
  - Headache [None]
  - Psoriasis [None]
  - Peripheral swelling [None]
  - Acne [None]
  - Chest pain [None]

NARRATIVE: CASE EVENT DATE: 20200918
